FAERS Safety Report 4641489-2 (Version None)
Quarter: 2005Q2

REPORT INFORMATION
  Report Type: 
  Country: None (occurrence: None)
  Receive Date: 20050421
  Receipt Date: 20050419
  Transmission Date: 20051028
  Serious: Yes (Death, Life-Threatening, Hospitalization, Other)
  Sender: FDA-Public Use
  Company Number: 2005-03-2050

PATIENT
  Age: 54 Year
  Sex: Female
  Weight: 62 kg

DRUGS (2)
  1. NAVELBINE [Suspect]
     Indication: METASTASES TO CENTRAL NERVOUS SYSTEM
     Dosage: 30MGM2 CYCLIC
     Route: 042
     Dates: start: 20050315
  2. TEMOZOLOMIDE [Suspect]
     Indication: METASTASES TO CENTRAL NERVOUS SYSTEM
     Dosage: 150MGM2 CYCLIC
     Route: 048
     Dates: start: 20050315

REACTIONS (8)
  - ABASIA [None]
  - ASTHENIA [None]
  - DISEASE PROGRESSION [None]
  - FALL [None]
  - LIVER FUNCTION TEST ABNORMAL [None]
  - LUNG ABSCESS [None]
  - PRODUCTIVE COUGH [None]
  - PULMONARY HAEMORRHAGE [None]
